FAERS Safety Report 20065010 (Version 1)
Quarter: 2021Q4

REPORT INFORMATION
  Report Type: Spontaneous
  Country: FR (occurrence: FR)
  Receive Date: 20211113
  Receipt Date: 20211113
  Transmission Date: 20220303
  Serious: Yes (Hospitalization)
  Sender: FDA-Public Use
  Company Number: FR-ABBVIE-21K-056-4159070-00

PATIENT
  Age: 71 Year
  Sex: Male

DRUGS (6)
  1. DEPAKOTE [Suspect]
     Active Substance: DIVALPROEX SODIUM
     Indication: Wrong product administered
     Route: 048
     Dates: start: 20191219
  2. ARIPIPRAZOLE [Suspect]
     Active Substance: ARIPIPRAZOLE
     Indication: Wrong product administered
     Route: 048
     Dates: start: 20191219
  3. DOLIPRANE [Suspect]
     Active Substance: ACETAMINOPHEN
     Indication: Wrong product administered
     Route: 048
     Dates: start: 20191219
  4. TRAMADOL HYDROCHLORIDE [Suspect]
     Active Substance: TRAMADOL HYDROCHLORIDE
     Indication: Wrong product administered
     Route: 048
     Dates: start: 20191219
  5. HYDROXYZINE [Suspect]
     Active Substance: HYDROXYZINE HYDROCHLORIDE
     Indication: Wrong product administered
     Route: 048
     Dates: start: 20191219
  6. OXAZEPAM [Suspect]
     Active Substance: OXAZEPAM
     Indication: Wrong product administered
     Route: 048
     Dates: start: 20191219

REACTIONS (3)
  - Oxygen saturation decreased [Recovered/Resolved]
  - Wrong patient received product [Unknown]
  - Medication error [Unknown]

NARRATIVE: CASE EVENT DATE: 20191219
